FAERS Safety Report 15709889 (Version 5)
Quarter: 2019Q1

REPORT INFORMATION
  Report Type: Spontaneous
  Country: US (occurrence: US)
  Receive Date: 20181211
  Receipt Date: 20190328
  Transmission Date: 20190417
  Serious: Yes (Other)
  Sender: FDA-Public Use
  Company Number: US-PFIZER INC-2018503795

PATIENT
  Age: 78 Year
  Sex: Female
  Weight: 64.99 kg

DRUGS (4)
  1. LYRICA [Suspect]
     Active Substance: PREGABALIN
     Indication: PAIN
     Dosage: 50 MG, 2X/DAY
     Route: 048
  2. VALACICLOVIR [Concomitant]
     Active Substance: VALACYCLOVIR HYDROCHLORIDE
     Indication: HERPES ZOSTER
     Dosage: 1MG, EVERY 8 HOURS UNTIL THEY ARE GONE
  3. LYRICA [Suspect]
     Active Substance: PREGABALIN
     Indication: SCIATICA
     Dosage: 75 MG, UNK
     Route: 048
  4. LYRICA [Suspect]
     Active Substance: PREGABALIN
     Indication: NEURALGIA
     Dosage: 50 MG, 1X/DAY (SOMETIMES SHE ONLY TAKES THE PRODUCT ONCE A DAY)
     Route: 048

REACTIONS (14)
  - Anal injury [Unknown]
  - Abnormal faeces [Not Recovered/Not Resolved]
  - Feeling abnormal [Unknown]
  - Constipation [Not Recovered/Not Resolved]
  - Intentional product misuse [Unknown]
  - Anal incontinence [Unknown]
  - Bowel movement irregularity [Unknown]
  - Drug intolerance [Unknown]
  - Faeces hard [Not Recovered/Not Resolved]
  - Therapeutic response unexpected [Unknown]
  - Rectal haemorrhage [Unknown]
  - Nasopharyngitis [Recovering/Resolving]
  - Body height decreased [Unknown]
  - Pre-existing condition improved [Unknown]
